FAERS Safety Report 15301119 (Version 5)
Quarter: 2018Q4

REPORT INFORMATION
  Report Type: Spontaneous
  Country: US (occurrence: US)
  Receive Date: 20180821
  Receipt Date: 20181015
  Transmission Date: 20190204
  Serious: Yes (Other)
  Sender: FDA-Public Use
  Company Number: US-PFIZER INC-2018332347

PATIENT
  Age: 92 Year
  Sex: Female
  Weight: 45.81 kg

DRUGS (5)
  1. IBRANCE [Suspect]
     Active Substance: PALBOCICLIB
     Indication: BREAST CANCER METASTATIC
     Dosage: 75 MG , CYCLIC (DAILY D 1-21 Q 28 DAYS)
     Route: 048
     Dates: start: 20180702
  2. EYLEA [Concomitant]
     Active Substance: AFLIBERCEPT
     Indication: MACULAR DEGENERATION
     Dosage: UNK
  3. SYNTHROID [Concomitant]
     Active Substance: LEVOTHYROXINE SODIUM
     Indication: HYPOTHYROIDISM
     Dosage: 75 UG, ONCE A DAY BEFORE EATING
     Route: 048
     Dates: start: 1980
  4. SLOW-FE [Concomitant]
     Active Substance: FERROUS SULFATE
     Indication: ANAEMIA
     Dosage: UNK
  5. PROLIA [Concomitant]
     Active Substance: DENOSUMAB
     Indication: OSTEOPOROSIS
     Dosage: 1 INJECTION EVERY 6 MONTHS, AT LEAST 3 -4 YEARS AGO

REACTIONS (7)
  - Pancytopenia [Not Recovered/Not Resolved]
  - Lacrimation increased [Unknown]
  - Fatigue [Unknown]
  - Conjunctival haemorrhage [Recovered/Resolved]
  - Eye disorder [Unknown]
  - Asthenia [Unknown]
  - Tri-iodothyronine decreased [Recovering/Resolving]

NARRATIVE: CASE EVENT DATE: 201807
